FAERS Safety Report 10981737 (Version 1)
Quarter: 2015Q1

REPORT INFORMATION
  Report Type: Spontaneous
  Country: US (occurrence: None)
  Receive Date: 20150227
  Receipt Date: 20150227
  Transmission Date: 20150721
  Serious: Yes (Other)
  Sender: FDA-Public Use
  Company Number: LMI-2014-00002

PATIENT
  Age: 39 Year
  Sex: Male
  Weight: 105 kg

DRUGS (2)
  1. LABETALOL [Concomitant]
     Active Substance: LABETALOL\LABETALOL HYDROCHLORIDE
  2. DEFINITY [Suspect]
     Active Substance: PERFLUTREN
     Indication: ECHOCARDIOGRAM
     Dosage: (1.3 ML DEFINITY DILUTED IN 8.7 ML NORMAL SALINE) (2 ML, 1 IN 1 D)
     Route: 040
     Dates: start: 20131226, end: 20131226

REACTIONS (3)
  - Oxygen saturation decreased [None]
  - Hypotension [None]
  - Paraesthesia [None]

NARRATIVE: CASE EVENT DATE: 20131226
